FAERS Safety Report 10237670 (Version 1)
Quarter: 2014Q2

REPORT INFORMATION
  Report Type: Spontaneous
  Country: US (occurrence: US)
  Receive Date: 20140616
  Receipt Date: 20140616
  Transmission Date: 20141212
  Serious: Yes (Other)
  Sender: FDA-Public Use
  Company Number: US-009507513-1406USA005984

PATIENT
  Age: 65 Year
  Sex: Female

DRUGS (2)
  1. REBETOL [Suspect]
     Dosage: 400 MG IN AM AND 600 MG IN PM
     Route: 048
  2. PEGINTRON [Suspect]
     Dosage: 120 MICROGRAM, QW
     Route: 058

REACTIONS (2)
  - Scab [Not Recovered/Not Resolved]
  - Pruritus [Not Recovered/Not Resolved]
